FAERS Safety Report 11801224 (Version 1)
Quarter: 2015Q4

REPORT INFORMATION
  Report Type: Report from Study
  Country: CA (occurrence: CA)
  Receive Date: 20151204
  Receipt Date: 20151204
  Transmission Date: 20160305
  Serious: Yes (Disabling, Other)
  Sender: FDA-Public Use
  Company Number: CA-AMGEN-CANSL2015128091

PATIENT
  Age: 76 Year
  Sex: Male
  Weight: 65 kg

DRUGS (1)
  1. PROLIA [Suspect]
     Active Substance: DENOSUMAB
     Indication: OSTEOPOROSIS
     Dosage: 60 MG/ML, UNK
     Route: 058

REACTIONS (2)
  - Colonoscopy [Recovered/Resolved]
  - Procedural intestinal perforation [Recovered/Resolved]

NARRATIVE: CASE EVENT DATE: 20150813
